FAERS Safety Report 25653641 (Version 1)
Quarter: 2025Q3

REPORT INFORMATION
  Report Type: Report from Study
  Country: US (occurrence: US)
  Receive Date: 20250807
  Receipt Date: 20250807
  Transmission Date: 20251020
  Serious: No
  Sender: SUNOVION
  Company Number: US-SUMITOMO PHARMA SWITZERLAND GMBH-2025SPA002197

PATIENT
  Age: 89 Year
  Sex: Male

DRUGS (2)
  1. ORGOVYX [Interacting]
     Active Substance: RELUGOLIX
     Indication: Prostate cancer
     Dosage: 120 MG, QD
     Route: 048
     Dates: start: 20230713
  2. PAXLOVID [Interacting]
     Active Substance: NIRMATRELVIR\RITONAVIR
     Indication: Product used for unknown indication

REACTIONS (5)
  - Cough [Unknown]
  - SARS-CoV-2 test positive [Unknown]
  - Drug interaction [Unknown]
  - Rash macular [Unknown]
  - Incorrect dose administered [Unknown]
